FAERS Safety Report 7723855-1 (Version None)
Quarter: 2011Q3

REPORT INFORMATION
  Report Type: 
  Country: None (occurrence: None)
  Receive Date: 20110901
  Receipt Date: 20110825
  Transmission Date: 20111222
  Serious: Yes (Life-Threatening, Hospitalization)
  Sender: FDA-Public Use
  Company Number: US-CELGENEUS-163-21880-11063312

PATIENT
  Sex: Female
  Weight: 71.823 kg

DRUGS (16)
  1. AMLODIPINE BESYLATE -BENAZEPRIL HCH [Concomitant]
     Route: 065
  2. COUMADIN [Concomitant]
     Dosage: 2 MILLIGRAM
     Route: 065
  3. MS CONTIN [Concomitant]
     Dosage: 15 MILLIGRAM
     Route: 065
  4. INSULIN [Concomitant]
     Dosage: 70/30
     Route: 065
  5. DIOVAN [Concomitant]
     Dosage: 80 MILLIGRAM
     Route: 065
  6. DEXAMETHASONE [Concomitant]
     Dosage: 20 MILLIGRAM
     Route: 065
  7. DIAZEPAM [Concomitant]
     Route: 065
  8. DIOVAN [Concomitant]
     Dosage: 320 MILLIGRAM
     Route: 065
  9. SENNA + COLACE [Concomitant]
     Route: 065
  10. LIPITOR [Concomitant]
     Dosage: 80 MILLIGRAM
     Route: 065
  11. REVLIMID [Suspect]
     Indication: MULTIPLE MYELOMA
     Dosage: 15 MILLIGRAM
     Route: 048
     Dates: start: 20110606, end: 20110615
  12. REVLIMID [Suspect]
     Route: 048
     Dates: start: 20100813
  13. NORVASC [Concomitant]
     Dosage: 10 MILLIGRAM
     Route: 065
  14. TENORMIN [Concomitant]
     Dosage: 25 MILLIGRAM
     Route: 065
  15. NPH INSULIN [Concomitant]
     Dosage: 44 UNITS
     Route: 065
  16. OXYCODONE HCL [Concomitant]
     Indication: PAIN
     Dosage: 5 MILLIGRAM
     Route: 065

REACTIONS (3)
  - MULTIPLE MYELOMA [None]
  - RENAL FAILURE ACUTE [None]
  - NEUROPATHY PERIPHERAL [None]
